FAERS Safety Report 6575719-7 (Version None)
Quarter: 2010Q1

REPORT INFORMATION
  Report Type: 
  Country: None (occurrence: None)
  Receive Date: 20100208
  Receipt Date: 20100208
  Transmission Date: 20100710
  Serious: Yes (Disabling, Other)
  Sender: FDA-Public Use
  Company Number: None

PATIENT
  Age: 30 Year
  Sex: Female
  Weight: 74.8435 kg

DRUGS (1)
  1. EFFEXOR [Suspect]
     Indication: ANGER
     Dosage: 225 MG DAY PO
     Route: 048
     Dates: start: 20090820, end: 20100120

REACTIONS (3)
  - DISINHIBITION [None]
  - DISSOCIATION [None]
  - PERSONALITY CHANGE [None]
